FAERS Safety Report 6413069-X (Version None)
Quarter: 2009Q4

REPORT INFORMATION
  Report Type: 
  Country: None (occurrence: None)
  Receive Date: 20091023
  Receipt Date: 20091023
  Transmission Date: 20100525
  Serious: Yes (Hospitalization)
  Sender: FDA-Public Use
  Company Number: None

PATIENT
  Sex: Male
  Weight: 79.6 kg

DRUGS (9)
  1. DASATINIB 50 MG BRISTOL MYER SQUIBB [Suspect]
     Indication: CHORDOMA
     Dosage: 50 BID PO
     Route: 048
     Dates: start: 20090608, end: 20090918
  2. DASATINIB 20 MG BRISTOL MYER SQUIBB [Suspect]
     Indication: CHORDOMA
     Dosage: 20 BID PO
     Route: 048
     Dates: start: 20090608, end: 20090918
  3. DILAUDID [Concomitant]
  4. PEPCID [Concomitant]
  5. PRILOSEC [Concomitant]
  6. LORAZEPAM [Concomitant]
  7. DEXAMETHASONE [Concomitant]
  8. ZOFRAN [Concomitant]
  9. LASIX [Concomitant]

REACTIONS (2)
  - CONSTIPATION [None]
  - PAIN [None]
